FAERS Safety Report 5432007-X (Version None)
Quarter: 2007Q3

REPORT INFORMATION
  Report Type: 
  Country: None (occurrence: None)
  Receive Date: 20070830
  Receipt Date: 20070828
  Transmission Date: 20080115
  Serious: Yes (Life-Threatening, Hospitalization)
  Sender: FDA-Public Use
  Company Number: US-GILEAD-2007-0012303

PATIENT
  Sex: Male
  Weight: 71.732 kg

DRUGS (7)
  1. ATRIPLA [Suspect]
     Indication: HIV INFECTION
     Route: 048
     Dates: start: 20070502, end: 20070516
  2. BACTRIM DS [Suspect]
     Indication: ANTIFUNGAL PROPHYLAXIS
     Route: 048
     Dates: start: 20070502, end: 20070516
  3. IBUPROFEN [Suspect]
     Indication: ARTHRALGIA
     Route: 048
     Dates: start: 20070416, end: 20070516
  4. KALETRA [Concomitant]
     Indication: HIV INFECTION
     Route: 048
     Dates: start: 20070502, end: 20070516
  5. FLUCONAZOLE [Concomitant]
     Indication: CANDIDIASIS
     Route: 048
     Dates: start: 20070502, end: 20070516
  6. ZOFRAN [Concomitant]
     Indication: NAUSEA
     Route: 048
     Dates: end: 20070516
  7. AZITHROMYCIN [Concomitant]
     Indication: OPPORTUNISTIC INFECTION PROPHYLAXIS
     Route: 048
     Dates: start: 20070502, end: 20070516

REACTIONS (4)
  - GASTRITIS [None]
  - NORMOCHROMIC NORMOCYTIC ANAEMIA [None]
  - RENAL FAILURE ACUTE [None]
  - RENAL TUBULAR DISORDER [None]
